FAERS Safety Report 8433608-7 (Version None)
Quarter: 2012Q2

REPORT INFORMATION
  Report Type: 
  Country: None (occurrence: None)
  Receive Date: 20120323
  Receipt Date: 20110714
  Transmission Date: 20120825
  Serious: Yes (Other)
  Sender: FDA-Public Use
  Company Number: 163-21880-11071933

PATIENT
  Age: 63 Year
  Sex: Male

DRUGS (8)
  1. DEXAMETHASONE [Concomitant]
  2. LENALIDOMIDE [Suspect]
     Dosage: SEE IMAGE
     Route: 048
     Dates: start: 20101229
  3. LENALIDOMIDE [Suspect]
     Dosage: SEE IMAGE
     Route: 048
     Dates: start: 20090305, end: 20090402
  4. LENALIDOMIDE [Suspect]
     Dosage: SEE IMAGE
     Route: 048
     Dates: start: 20110715
  5. LENALIDOMIDE [Suspect]
     Dosage: SEE IMAGE
     Route: 048
     Dates: start: 20081118, end: 20090101
  6. LENALIDOMIDE [Suspect]
     Dosage: SEE IMAGE
     Route: 048
     Dates: start: 20110316, end: 20110702
  7. LENALIDOMIDE [Suspect]
     Dosage: SEE IMAGE
     Route: 048
     Dates: start: 20090210, end: 20090101
  8. VELCADE [Concomitant]

REACTIONS (4)
  - NEUTROPHIL COUNT DECREASED [None]
  - WHITE BLOOD CELL COUNT DECREASED [None]
  - FULL BLOOD COUNT DECREASED [None]
  - PLATELET COUNT DECREASED [None]
